FAERS Safety Report 19524677 (Version 1)
Quarter: 2021Q3

REPORT INFORMATION
  Report Type: Spontaneous
  Country: US (occurrence: US)
  Receive Date: 20210712
  Receipt Date: 20210712
  Transmission Date: 20211014
  Serious: No
  Sender: FDA-Public Use
  Company Number: None

PATIENT
  Age: 53 Year
  Sex: Female
  Weight: 63 kg

DRUGS (12)
  1. CYCLOBENZAPRINE. [Concomitant]
     Active Substance: CYCLOBENZAPRINE
  2. SUMATRIPTAN SUCCINATE. [Concomitant]
     Active Substance: SUMATRIPTAN SUCCINATE
  3. RAMIPRIL. [Concomitant]
     Active Substance: RAMIPRIL
  4. EXCEDRIN MIGRAINE 250?250?65MG [Concomitant]
  5. METOPROLOL TARTRATE. [Concomitant]
     Active Substance: METOPROLOL TARTRATE
  6. IBRANCE [Suspect]
     Active Substance: PALBOCICLIB
     Indication: BREAST CANCER
     Dosage: ?          OTHER FREQUENCY:QD 21/28 DAYS;?
     Route: 048
     Dates: start: 20210327
  7. PRILOSEC [Concomitant]
     Active Substance: OMEPRAZOLE MAGNESIUM
  8. BUSPIRONE [Concomitant]
     Active Substance: BUSPIRONE HYDROCHLORIDE
  9. LETROZOLE 2.5MG [Concomitant]
     Active Substance: LETROZOLE
  10. IBUPROFEN 200MG [Concomitant]
     Active Substance: IBUPROFEN
  11. LUNESTA [Concomitant]
     Active Substance: ESZOPICLONE
  12. LAMOTRIGINE 100MG [Concomitant]
     Active Substance: LAMOTRIGINE

REACTIONS (2)
  - Alopecia [None]
  - Fatigue [None]

NARRATIVE: CASE EVENT DATE: 20210712
